FAERS Safety Report 20013274 (Version 1)
Quarter: 2021Q4

REPORT INFORMATION
  Report Type: Report from Study
  Country: IL (occurrence: IL)
  Receive Date: 20211029
  Receipt Date: 20211029
  Transmission Date: 20220303
  Serious: Yes (Hospitalization)
  Sender: FDA-Public Use
  Company Number: IL-AMGEN-ISRSL2021126183

PATIENT
  Age: 14 Year
  Sex: Male
  Weight: 82 kg

DRUGS (3)
  1. NPLATE [Suspect]
     Active Substance: ROMIPLOSTIM
     Indication: Immune thrombocytopenia
     Dosage: 160 MICROGRAM, QWK
     Route: 058
     Dates: start: 20210727
  2. NPLATE [Suspect]
     Active Substance: ROMIPLOSTIM
     Dosage: 160 MICROGRAM, QWK
     Route: 058
     Dates: start: 20210727
  3. COVID-19 VACCINE [Concomitant]
     Dosage: UNK
     Dates: start: 20210804

REACTIONS (2)
  - Platelet count decreased [Unknown]
  - Blood creatine phosphokinase increased [Unknown]

NARRATIVE: CASE EVENT DATE: 20210810
